FAERS Safety Report 4739933-5 (Version None)
Quarter: 2005Q3

REPORT INFORMATION
  Report Type: 
  Country: None (occurrence: None)
  Receive Date: 20050810
  Receipt Date: 20030923
  Transmission Date: 20060218
  Serious: No
  Sender: FDA-Public Use
  Company Number: US-GLAXOSMITHKLINE-A0428585A

PATIENT
  Age: 25 Year
  Sex: Female
  Weight: 52.3 kg

DRUGS (1)
  1. PAXIL [Suspect]
     Indication: DEPRESSION
     Route: 048
     Dates: start: 20011112, end: 20020922

REACTIONS (17)
  - ABNORMAL DREAMS [None]
  - ANOREXIA [None]
  - CHILLS [None]
  - CONFUSIONAL STATE [None]
  - DIARRHOEA [None]
  - DIZZINESS [None]
  - DRUG WITHDRAWAL SYNDROME [None]
  - FEAR [None]
  - HEADACHE [None]
  - HOT FLUSH [None]
  - HYPERACUSIS [None]
  - HYPERHIDROSIS [None]
  - INSOMNIA [None]
  - MOOD SWINGS [None]
  - MOVEMENT DISORDER [None]
  - PANIC ATTACK [None]
  - SENSORY DISTURBANCE [None]
